FAERS Safety Report 4793579-1 (Version None)
Quarter: 2005Q4

REPORT INFORMATION
  Report Type: 
  Country: None (occurrence: None)
  Receive Date: 20051006
  Receipt Date: 20050919
  Transmission Date: 20060501
  Serious: Yes (Death)
  Sender: FDA-Public Use
  Company Number: AND_0062_2005

PATIENT
  Age: 47 Year
  Sex: 0

DRUGS (3)
  1. DILTIAZEM [Suspect]
     Dosage: DF
  2. COCAINE [Suspect]
     Dosage: DF
  3. NIFEDIPINE [Suspect]
     Dosage: DF

REACTIONS (2)
  - INTENTIONAL DRUG MISUSE [None]
  - POLYSUBSTANCE ABUSE [None]
